FAERS Safety Report 8605015-5 (Version None)
Quarter: 2012Q3

REPORT INFORMATION
  Report Type: 
  Country: None (occurrence: None)
  Receive Date: 20120820
  Receipt Date: 20120813
  Transmission Date: 20120928
  Serious: No
  Sender: FDA-Public Use
  Company Number: CA-JNJFOC-20120807718

PATIENT
  Sex: Female
  Weight: 88 kg

DRUGS (3)
  1. PREDNISONE TAB [Concomitant]
     Route: 065
  2. REMICADE [Suspect]
     Indication: PRODUCT USED FOR UNKNOWN INDICATION
     Route: 042
     Dates: end: 20120101
  3. METHOTREXATE [Concomitant]
     Route: 065

REACTIONS (2)
  - OROPHARYNGEAL PAIN [None]
  - CANDIDIASIS [None]
